FAERS Safety Report 5149772-1 (Version None)
Quarter: 2006Q4

REPORT INFORMATION
  Report Type: 
  Country: None (occurrence: None)
  Receive Date: 20061113
  Receipt Date: 20060907
  Transmission Date: 20070319
  Serious: Yes (Hospitalization)
  Sender: FDA-Public Use
  Company Number: US-ELI_LILLY_AND_COMPANY-US200609001941

PATIENT
  Age: 50 Year
  Sex: Female
  Weight: 65.759 kg

DRUGS (4)
  1. ALIMTA [Suspect]
     Indication: NON-SMALL CELL LUNG CANCER
     Dosage: 850 MG, OTHER
     Route: 042
     Dates: start: 20060407
  2. VITAMIN B-12 [Concomitant]
     Dosage: 1000 UG, UNKNOWN
     Route: 065
     Dates: start: 20060331
  3. FOLIC ACID [Concomitant]
     Dosage: 400 UG, UNKNOWN
     Route: 065
     Dates: start: 20060331
  4. CORTICOSTEROID NOS [Concomitant]
     Dosage: 4 MG, OTHER
     Route: 065
     Dates: start: 20060406

REACTIONS (2)
  - PERICARDIAL EFFUSION [None]
  - PERICARDITIS [None]
